FAERS Safety Report 9541591 (Version 2)
Quarter: 2013Q3

REPORT INFORMATION
  Report Type: Spontaneous
  Country: DE (occurrence: DE)
  Receive Date: 20130923
  Receipt Date: 20130923
  Transmission Date: 20140515
  Serious: Yes (Hospitalization)
  Sender: FDA-Public Use
  Company Number: DE-AMGEN-DEUSP2013035774

PATIENT
  Age: 65 Year
  Sex: Male

DRUGS (5)
  1. ENBREL [Suspect]
     Indication: RHEUMATOID ARTHRITIS
     Dosage: 50 MG, WEEKLY
     Route: 058
     Dates: start: 20121122
  2. PREDNISOLON                        /00016201/ [Concomitant]
     Dosage: 20 MG, DAILY
     Dates: start: 20130418, end: 20130429
  3. PREDNISOLON                        /00016201/ [Concomitant]
     Dosage: 15 MG, DAILY
     Dates: start: 20130430, end: 20130502
  4. PREDNISOLON                        /00016201/ [Concomitant]
     Dosage: 10 MG, DAILY
     Dates: start: 20130503, end: 20130506
  5. CORTISONE [Concomitant]
     Dosage: 1 MG, UNK

REACTIONS (8)
  - Sciatica [Unknown]
  - Spinal claudication [Unknown]
  - Osteochondrosis [Unknown]
  - Spinal osteoarthritis [Unknown]
  - Drug intolerance [Unknown]
  - Back pain [Recovered/Resolved]
  - Intervertebral disc disorder [Recovered/Resolved]
  - Laboratory test abnormal [Recovered/Resolved]
